FAERS Safety Report 4335460-8 (Version None)
Quarter: 2004Q2

REPORT INFORMATION
  Report Type: 
  Country: None (occurrence: None)
  Receive Date: 20040406
  Receipt Date: 20040322
  Transmission Date: 20050107
  Serious: Yes (Hospitalization)
  Sender: FDA-Public Use
  Company Number: 194828

PATIENT
  Age: 45 Year
  Sex: Male
  Weight: 78.0187 kg

DRUGS (4)
  1. AVONEX [Suspect]
     Indication: MULTIPLE SCLEROSIS
     Dosage: 30 MCG QW IM
     Route: 030
     Dates: start: 20010901
  2. PROVIGIL [Concomitant]
  3. PAXIL [Concomitant]
  4. CLONAZEPAM [Concomitant]

REACTIONS (20)
  - BLOOD TRIGLYCERIDES INCREASED [None]
  - CARDIAC ARREST [None]
  - COMPARTMENT SYNDROME [None]
  - CONCUSSION [None]
  - DEPRESSION [None]
  - DIARRHOEA [None]
  - FACIAL PALSY [None]
  - FAECES DISCOLOURED [None]
  - HAEMORRHAGE [None]
  - LIVER DISORDER [None]
  - LOWER LIMB FRACTURE [None]
  - MEMORY IMPAIRMENT [None]
  - MITRAL VALVE PROLAPSE [None]
  - MULTIPLE SCLEROSIS RELAPSE [None]
  - RESPIRATORY DISORDER [None]
  - ROAD TRAFFIC ACCIDENT [None]
  - SLEEP DISORDER [None]
  - TREMOR [None]
  - UPPER LIMB FRACTURE [None]
  - VISUAL DISTURBANCE [None]
